FAERS Safety Report 8078160-3 (Version None)
Quarter: 2012Q1

REPORT INFORMATION
  Report Type: 
  Country: None (occurrence: None)
  Receive Date: 20120127
  Receipt Date: 20110112
  Transmission Date: 20120608
  Serious: No
  Sender: FDA-Public Use
  Company Number: US-BAUSCH-2011BL000192

PATIENT
  Age: 63 Year
  Sex: Male

DRUGS (3)
  1. ZYLET [Suspect]
     Indication: EYE INFECTION BACTERIAL
     Route: 047
     Dates: start: 20110111, end: 20110111
  2. ZYLET [Suspect]
     Indication: DRY EYE
     Route: 047
     Dates: start: 20110111, end: 20110111
  3. COZAAR [Concomitant]
     Indication: HYPERTENSION
     Dates: start: 19950101

REACTIONS (2)
  - WRONG TECHNIQUE IN DRUG USAGE PROCESS [None]
  - EYE PAIN [None]
